FAERS Safety Report 7800271-5 (Version None)
Quarter: 2011Q4

REPORT INFORMATION
  Report Type: 
  Country: None (occurrence: None)
  Receive Date: 20111006
  Receipt Date: 20110926
  Transmission Date: 20120403
  Serious: Yes (Hospitalization)
  Sender: FDA-Public Use
  Company Number: JP-GLAXOSMITHKLINE-B0573528A

PATIENT
  Sex: Male

DRUGS (8)
  1. LAMICTAL [Suspect]
     Indication: EPILEPSY
     Dosage: 50MG PER DAY
     Route: 048
     Dates: start: 20090409, end: 20090507
  2. GABAPENTIN [Suspect]
     Indication: EPILEPSY
     Route: 048
     Dates: start: 20090409, end: 20090508
  3. PROLMON [Suspect]
     Indication: EPILEPSY
     Route: 048
     Dates: end: 20090508
  4. CEROCRAL [Suspect]
     Indication: EPILEPSY
     Dosage: 80MG PER DAY
     Route: 048
     Dates: end: 20090508
  5. DIAZEPAM [Suspect]
     Indication: EPILEPSY
     Dosage: 6MG PER DAY
     Route: 048
     Dates: end: 20090508
  6. DEPAKENE [Suspect]
     Indication: EPILEPSY
     Dosage: 840MG PER DAY
     Route: 048
  7. CARBAMAZEPINE [Suspect]
     Indication: EPILEPSY
     Dosage: 450MG PER DAY
     Route: 048
     Dates: end: 20090508
  8. PHENYTOIN SODIUM CAP [Suspect]
     Indication: EPILEPSY
     Dosage: 240MG PER DAY
     Route: 048

REACTIONS (10)
  - RASH [None]
  - MALAISE [None]
  - PYREXIA [None]
  - EOSINOPHIL COUNT INCREASED [None]
  - COUGH [None]
  - ERYTHEMA [None]
  - OROPHARYNGEAL PAIN [None]
  - WHITE BLOOD CELL COUNT DECREASED [None]
  - EOSINOPHILIA [None]
  - HEPATIC FUNCTION ABNORMAL [None]
